FAERS Safety Report 6344259-2 (Version None)
Quarter: 2009Q3

REPORT INFORMATION
  Report Type: 
  Country: None (occurrence: None)
  Receive Date: 20090904
  Receipt Date: 20090904
  Transmission Date: 20100115
  Serious: Yes (Life-Threatening)
  Sender: FDA-Public Use
  Company Number: None

PATIENT
  Age: 10 Year
  Sex: Female
  Weight: 39.2 kg

DRUGS (1)
  1. ALBUTEROL UNK UNK [Suspect]
     Indication: ASTHMA
     Dosage: 15MG/HR X2; THEN 5MG/HR X 2
     Dates: start: 20081103, end: 20081104

REACTIONS (2)
  - DRUG INEFFECTIVE [None]
  - SUPRAVENTRICULAR TACHYCARDIA [None]
